FAERS Safety Report 12783474 (Version 3)
Quarter: 2016Q4

REPORT INFORMATION
  Report Type: Report from Study
  Country: None (occurrence: NL)
  Receive Date: 20160927
  Receipt Date: 20161005
  Transmission Date: 20170207
  Serious: Yes (Death, Life-Threatening)
  Sender: FDA-Public Use
  Company Number: NL-ABBVIE-16K-114-1737727-00

PATIENT
  Sex: Male

DRUGS (3)
  1. DUODOPA [Suspect]
     Active Substance: CARBIDOPA\LEVODOPA
     Indication: PARKINSON^S DISEASE
     Dosage: MORNING DOSE: 8.0 CONTINUOUS DOSE: 8.7 EXTRA DOSE: 6.0 NIGHT DOSE: 4.0-7.5
     Route: 050
     Dates: start: 20150601
  2. DUODOPA [Suspect]
     Active Substance: CARBIDOPA\LEVODOPA
     Indication: PARKINSONISM
  3. DUODOPA [Suspect]
     Active Substance: CARBIDOPA\LEVODOPA
     Indication: MULTIPLE SYSTEM ATROPHY

REACTIONS (2)
  - General physical condition abnormal [Not Recovered/Not Resolved]
  - Pulmonary oedema [Fatal]
